FAERS Safety Report 4375511-8 (Version None)
Quarter: 2004Q2

REPORT INFORMATION
  Report Type: 
  Country: None (occurrence: None)
  Receive Date: 20040607
  Receipt Date: 20040528
  Transmission Date: 20050107
  Serious: Yes (Hospitalization)
  Sender: FDA-Public Use
  Company Number: 2004-02410

PATIENT
  Age: 54 Year
  Sex: Male
  Weight: 81.6 kg

DRUGS (8)
  1. GLIPIZIDE [Suspect]
     Indication: DIABETES MELLITUS
     Dosage: 2 TABLET, DAILY, ORAL
     Route: 048
     Dates: start: 20040515
  2. IBUPROFEN [Concomitant]
  3. LOTENSIN [Concomitant]
  4. TOPROL-XL [Concomitant]
  5. LASIX [Concomitant]
  6. PRAVACHOL [Concomitant]
  7. POTASSIUM [Concomitant]
  8. ZOLOFT [Concomitant]

REACTIONS (4)
  - BLOOD GLUCOSE INCREASED [None]
  - DRUG INEFFECTIVE [None]
  - DYSARTHRIA [None]
  - VISION BLURRED [None]
